FAERS Safety Report 10431199 (Version 8)
Quarter: 2015Q2

REPORT INFORMATION
  Report Type: Spontaneous
  Country: US (occurrence: None)
  Receive Date: 20140902
  Receipt Date: 20150608
  Transmission Date: 20150821
  Serious: Yes (Hospitalization)
  Sender: FDA-Public Use
  Company Number: US-001190

PATIENT
  Sex: Female
  Weight: 30.39 kg

DRUGS (17)
  1. ASCORBIC ACID. [Concomitant]
     Active Substance: ASCORBIC ACID
  2. BUDESONIDE. [Concomitant]
     Active Substance: BUDESONIDE
  3. LOPERAMIDE [Concomitant]
     Active Substance: LOPERAMIDE
  4. ENTEROMYCIN [Concomitant]
  5. ZINC [Concomitant]
     Active Substance: ZINC\ZINC CHLORIDE
  6. CALCIUM CARBONATE. [Concomitant]
     Active Substance: CALCIUM CARBONATE
  7. CHOLECALCIFEROL [Concomitant]
     Active Substance: CHOLECALCIFEROL
  8. RANITIDINE [Concomitant]
     Active Substance: RANITIDINE\RANITIDINE HYDROCHLORIDE
  9. VITAMIN E NOS [Concomitant]
  10. MAGNESIUM OXIDE. [Concomitant]
     Active Substance: MAGNESIUM OXIDE
  11. MONTELUKAST [Concomitant]
     Active Substance: MONTELUKAST SODIUM
  12. SOLUTIONS FOR PARENTERAL NUTRITION [Concomitant]
     Active Substance: AMINO ACIDS\DEXTROSE\ELECTROLYTES NOS
  13. CALCITRIOL. [Concomitant]
     Active Substance: CALCITRIOL
  14. MULTIVITAMIN [Concomitant]
     Active Substance: VITAMINS
  15. FONDAPARINUX [Concomitant]
     Active Substance: FONDAPARINUX
  16. GATTEX [Suspect]
     Active Substance: TEDUGLUTIDE\WATER
     Indication: SHORT-BOWEL SYNDROME
     Dosage: 2 G QD SUBCUTANEOUS
     Route: 058
     Dates: start: 20140508, end: 201412
  17. POTASSIUM [Concomitant]
     Active Substance: POTASSIUM

REACTIONS (18)
  - Gastrointestinal haemorrhage [None]
  - Pneumatosis intestinalis [None]
  - Cardiomyopathy [None]
  - Pain [None]
  - Anaesthetic complication cardiac [None]
  - Gastrostomy tube site complication [None]
  - Gastrointestinal motility disorder [None]
  - Lipase increased [None]
  - Blood calcium decreased [None]
  - Thrombosis [None]
  - Therapy cessation [None]
  - Anaemia [None]
  - Heart rate increased [None]
  - Dehydration [None]
  - Pyrexia [None]
  - Rectal haemorrhage [None]
  - Proctalgia [None]
  - Weight decreased [None]

NARRATIVE: CASE EVENT DATE: 2014
